FAERS Safety Report 12927079 (Version 1)
Quarter: 2016Q4

REPORT INFORMATION
  Report Type: Spontaneous
  Country: US (occurrence: US)
  Receive Date: 20161109
  Receipt Date: 20161109
  Transmission Date: 20170207
  Serious: Yes (Death, Hospitalization)
  Sender: FDA-Public Use
  Company Number: None

PATIENT
  Age: 8 Year
  Sex: Male
  Weight: 51.3 kg

DRUGS (6)
  1. ONCASPAR [Suspect]
     Active Substance: PEGASPARGASE
     Dates: end: 20160926
  2. VINCRISTINE SULFATE. [Concomitant]
     Active Substance: VINCRISTINE SULFATE
     Dates: end: 20161003
  3. CYTARABINE. [Concomitant]
     Active Substance: CYTARABINE
     Dates: end: 20160922
  4. METHOTREXATE. [Concomitant]
     Active Substance: METHOTREXATE
     Dates: end: 20160912
  5. MERCAPTOPURINE. [Concomitant]
     Active Substance: MERCAPTOPURINE
     Dates: end: 20160925
  6. CYCLOPHOSPHAMIDE. [Suspect]
     Active Substance: CYCLOPHOSPHAMIDE
     Dates: end: 20160912

REACTIONS (12)
  - Haemoptysis [None]
  - Respiratory acidosis [None]
  - Nodal rhythm [None]
  - Febrile neutropenia [None]
  - Pulse absent [None]
  - Cardio-respiratory arrest [None]
  - Bradycardia [None]
  - Metabolic acidosis [None]
  - Blood pressure decreased [None]
  - Bronchopulmonary aspergillosis [None]
  - Aspergilloma [None]
  - Mental status changes [None]

NARRATIVE: CASE EVENT DATE: 20161101
